FAERS Safety Report 15328904 (Version 1)
Quarter: 2018Q3

REPORT INFORMATION
  Report Type: Spontaneous
  Country: US (occurrence: US)
  Receive Date: 20180823
  Receipt Date: 20180823
  Transmission Date: 20181010
  Serious: No
  Sender: FDA-Public Use
  Company Number: None

PATIENT
  Age: 55 Year
  Sex: Female
  Weight: 67.5 kg

DRUGS (2)
  1. MULTIVITAMIN [Concomitant]
     Active Substance: VITAMINS
  2. JUBLIA [Suspect]
     Active Substance: EFINACONAZOLE
     Indication: ONYCHOMYCOSIS
     Dosage: ?          OTHER STRENGTH:APPLY WITH BRUSH;QUANTITY:1 APPLY WITH BRUSH;?
     Route: 061
     Dates: start: 20170901, end: 20180823

REACTIONS (8)
  - Nail bed bleeding [None]
  - Burning sensation [None]
  - Erythema [None]
  - Dermatitis [None]
  - Pain [None]
  - Wound secretion [None]
  - Blister [None]
  - Rash erythematous [None]

NARRATIVE: CASE EVENT DATE: 20180801
